FAERS Safety Report 7860378-3 (Version None)
Quarter: 2011Q4

REPORT INFORMATION
  Report Type: 
  Country: None (occurrence: None)
  Receive Date: 20111027
  Receipt Date: 20111018
  Transmission Date: 20120403
  Serious: Yes (Hospitalization)
  Sender: FDA-Public Use
  Company Number: PHEH2011US05503

PATIENT
  Sex: Female
  Weight: 76 kg

DRUGS (7)
  1. FOLIC ACID [Concomitant]
     Dosage: 1 MG, DAILY
     Route: 048
  2. EXJADE [Suspect]
     Dosage: 500 MG, QID
  3. METHADONE HCL [Concomitant]
     Dosage: 30 MG, TID
     Route: 048
  4. LOPRESSOR [Concomitant]
     Dosage: 50 MG, BID
     Route: 048
     Dates: start: 20110901
  5. EXJADE [Suspect]
     Indication: SICKLE CELL ANAEMIA
     Dosage: 2000 MG, DAILY
     Route: 048
     Dates: start: 20081103
  6. PREDNISONE [Concomitant]
     Dosage: 30 MG, BID
     Route: 048
     Dates: start: 20110901
  7. HYDROXYUREA [Concomitant]
     Dosage: 500 MG, BID
     Route: 048

REACTIONS (10)
  - CARDIOMEGALY [None]
  - PULMONARY HYPERTENSION [None]
  - ACUTE CHEST SYNDROME [None]
  - PNEUMONIA [None]
  - PULMONARY HAEMORRHAGE [None]
  - URINARY TRACT INFECTION [None]
  - SICKLE CELL ANAEMIA WITH CRISIS [None]
  - RENAL FAILURE ACUTE [None]
  - PERICARDIAL EFFUSION [None]
  - ACUTE RESPIRATORY FAILURE [None]
